FAERS Safety Report 8795279 (Version 1)
Quarter: 2012Q4

REPORT INFORMATION
  Report Type: 
  Country: US (occurrence: US)
  Receive Date: 20120917
  Receipt Date: 20120917
  Transmission Date: 20130627
  Serious: No
  Sender: FDA-Public Use
  Company Number: US-009507513-1209USA006147

PATIENT

DRUGS (5)
  1. JANUVIA [Suspect]
     Indication: BLOOD GLUCOSE INCREASED
     Dosage: UNK mg, UNK
  2. METFORMIN [Concomitant]
  3. LOSARTAN POTASSIUM [Concomitant]
  4. NORVASC [Concomitant]
  5. ATENOLOL [Concomitant]

REACTIONS (2)
  - Drug ineffective [Unknown]
  - Blood glucose increased [Unknown]
